FAERS Safety Report 17884813 (Version 1)
Quarter: 2020Q2

REPORT INFORMATION
  Report Type: Spontaneous
  Country: US (occurrence: US)
  Receive Date: 20200611
  Receipt Date: 20200611
  Transmission Date: 20200714
  Serious: Yes (Death)
  Sender: FDA-Public Use
  Company Number: None

PATIENT
  Age: 44 Year
  Sex: Female
  Weight: 103.2 kg

DRUGS (1)
  1. REMDESIVIR UNDER EMERGENCY USE AUTHORIZATION (EUA [Suspect]
     Active Substance: REMDESIVIR
     Indication: SARS-COV-2 TEST POSITIVE
     Route: 042
     Dates: start: 20200525, end: 20200529

REACTIONS (4)
  - Tachypnoea [None]
  - Tachycardia [None]
  - Glomerular filtration rate decreased [None]
  - Alanine aminotransferase increased [None]

NARRATIVE: CASE EVENT DATE: 20200605
